FAERS Safety Report 6908921-2 (Version None)
Quarter: 2010Q3

REPORT INFORMATION
  Report Type: 
  Country: None (occurrence: None)
  Receive Date: 20100805
  Receipt Date: 20100729
  Transmission Date: 20110219
  Serious: Yes (Hospitalization, Other)
  Sender: FDA-Public Use
  Company Number: DE-PFIZER INC-2009294823

PATIENT
  Age: 81 Year
  Sex: Female
  Weight: 57.596 kg

DRUGS (8)
  1. SORTIS [Suspect]
     Indication: HYPERCHOLESTEROLAEMIA
     Dosage: 10 MG, 1X/DAY
     Route: 048
     Dates: start: 20031201, end: 20091101
  2. SORTIS [Suspect]
     Dosage: 20 MG, 1X/DAY
  3. BLOPRESS PLUS [Concomitant]
     Indication: HYPERTENSION
     Dosage: DAILY DOSE 1 DF = 16 MG CANDESARTAN CILEXETIL/ 12.5 MG HYDROCHLOROTHIAZIDE
     Route: 048
  4. AMLODIPINE MESILATE [Concomitant]
     Indication: HYPERTENSION
     Dosage: 5 MG PER DAY
     Route: 048
  5. TEBONIN [Concomitant]
     Indication: DIZZINESS
     Dosage: 80 MG PER DAY
     Route: 048
  6. ASPIRIN [Concomitant]
     Dosage: 100 UNK, 1X/DAY
  7. NEBIVOLOL HCL [Concomitant]
     Dosage: 1/2  5 MG, 1X/DAY
  8. SCOPODERM [Concomitant]
     Dosage: EVERY 3 DAYS

REACTIONS (3)
  - DYSARTHRIA [None]
  - MOTOR NEURONE DISEASE [None]
  - QUADRIPARESIS [None]
